FAERS Safety Report 8225628-2 (Version None)
Quarter: 2012Q1

REPORT INFORMATION
  Report Type: 
  Country: None (occurrence: None)
  Receive Date: 20120321
  Receipt Date: 20120319
  Transmission Date: 20120608
  Serious: Yes (Other)
  Sender: FDA-Public Use
  Company Number: US-ABBOTT-12P-163-0916525-00

PATIENT
  Sex: Male
  Weight: 96.702 kg

DRUGS (1)
  1. HUMIRA [Suspect]
     Indication: PSORIATIC ARTHROPATHY
     Dates: start: 20050101

REACTIONS (4)
  - PROSTATOMEGALY [None]
  - PROSTATE CANCER [None]
  - POLLAKIURIA [None]
  - HAEMATURIA [None]
